FAERS Safety Report 16071378 (Version 1)
Quarter: 2019Q1

REPORT INFORMATION
  Report Type: Spontaneous
  Country: US (occurrence: US)
  Receive Date: 20190314
  Receipt Date: 20190314
  Transmission Date: 20190418
  Serious: No
  Sender: FDA-Public Use
  Company Number: US-PFIZER INC-2016596541

PATIENT
  Age: 72 Year
  Sex: Female
  Weight: 85.73 kg

DRUGS (8)
  1. FAMOTIDINE. [Concomitant]
     Active Substance: FAMOTIDINE
     Dosage: UNK
  2. TIZANIDINE. [Concomitant]
     Active Substance: TIZANIDINE
     Dosage: (ONLY AT NIGHT ABOUT 5 MINUTES GOING TO BED)
  3. CELEBREX [Suspect]
     Active Substance: CELECOXIB
     Indication: TENDONITIS
  4. CELEBREX [Suspect]
     Active Substance: CELECOXIB
     Indication: BURSITIS
  5. CELEBREX [Suspect]
     Active Substance: CELECOXIB
     Indication: ARTHRITIS
     Dosage: 200 MG, 1X/DAY
     Route: 048
  6. FEXOFENADINE HCL [Concomitant]
     Active Substance: FEXOFENADINE HYDROCHLORIDE
     Dosage: UNK
  7. CELEBREX [Suspect]
     Active Substance: CELECOXIB
     Indication: OSTEOARTHRITIS
  8. CELEBREX [Suspect]
     Active Substance: CELECOXIB
     Indication: FIBROMYALGIA

REACTIONS (3)
  - Drug effect incomplete [Unknown]
  - Arthritis [Unknown]
  - Ligament sprain [Recovering/Resolving]
